FAERS Safety Report 13679286 (Version 2)
Quarter: 2017Q2

REPORT INFORMATION
  Report Type: Spontaneous
  Country: AU (occurrence: AU)
  Receive Date: 20170622
  Receipt Date: 20170623
  Transmission Date: 20170830
  Serious: Yes (Hospitalization, Other)
  Sender: FDA-Public Use
  Company Number: AU-JNJFOC-20170617041

PATIENT
  Age: 60 Year
  Sex: Male

DRUGS (2)
  1. IMBRUVICA [Suspect]
     Active Substance: IBRUTINIB
     Indication: CHRONIC LYMPHOCYTIC LEUKAEMIA
     Route: 048
  2. VENETOCLAX [Suspect]
     Active Substance: VENETOCLAX
     Indication: CHRONIC LYMPHOCYTIC LEUKAEMIA
     Route: 065
     Dates: start: 20161024, end: 20170609

REACTIONS (6)
  - Richter^s syndrome [Unknown]
  - Fibrosis [Unknown]
  - Hepatic neoplasm [Unknown]
  - Diffuse large B-cell lymphoma [Unknown]
  - Biliary dilatation [Unknown]
  - Jaundice [Unknown]

NARRATIVE: CASE EVENT DATE: 20170503
